FAERS Safety Report 9384168 (Version 1)
Quarter: 2013Q3

REPORT INFORMATION
  Report Type: Spontaneous
  Country: US (occurrence: None)
  Receive Date: 20130702
  Receipt Date: 20130702
  Transmission Date: 20140515
  Serious: Yes (Disabling, Other)
  Sender: FDA-Public Use
  Company Number: None

PATIENT
  Age: 75 Year
  Sex: Female
  Weight: 89.81 kg

DRUGS (1)
  1. SULFAMETH/TRIMETHOPRIM [Suspect]
     Indication: BLOOD URINE PRESENT
     Dosage: STRENGTH: DOUBLE STRENGTH-NO MG. MENTIONED  ?QUANTITY:  14 PILLS (DAYS) LENNRY; 12 HR-7DAYS ?FREQUENCY: 1 EVERY 12 HR (12NOON-12MIDNITE ?HOW: DRINK (LOTS OF WATER! OR KIDNEY STONES?) ?
     Route: 048
     Dates: start: 20130525, end: 20130601

REACTIONS (5)
  - Headache [None]
  - Nausea [None]
  - Influenza [None]
  - Pain [None]
  - Decreased appetite [None]
